FAERS Safety Report 7024984-0 (Version None)
Quarter: 2010Q4

REPORT INFORMATION
  Report Type: 
  Country: None (occurrence: None)
  Receive Date: 20101001
  Receipt Date: 20100924
  Transmission Date: 20110411
  Serious: Yes (Other)
  Sender: FDA-Public Use
  Company Number: BR-ELI_LILLY_AND_COMPANY-BR201009007118

PATIENT
  Sex: Male
  Weight: 100 kg

DRUGS (4)
  1. HUMALOG MIX 75/25 [Suspect]
     Indication: DIABETES MELLITUS
     Dosage: 10 IU, EACH MORNING
     Route: 065
     Dates: start: 20091001
  2. HUMALOG MIX 75/25 [Suspect]
     Dosage: 10 IU, EACH EVENING
     Route: 065
     Dates: start: 20091001
  3. METFORMIN HCL [Concomitant]
     Indication: BLOOD GLUCOSE
     Route: 065
  4. GLIMEPIRIDE [Concomitant]
     Indication: BLOOD GLUCOSE
     Dosage: UNK, 3/D
     Route: 065

REACTIONS (2)
  - CEREBROVASCULAR ACCIDENT [None]
  - HEMIPLEGIA [None]
